FAERS Safety Report 6762444-2 (Version None)
Quarter: 2010Q2

REPORT INFORMATION
  Report Type: 
  Country: None (occurrence: None)
  Receive Date: 20100609
  Receipt Date: 20100527
  Transmission Date: 20101027
  Serious: Yes (Death, Life-Threatening, Other)
  Sender: FDA-Public Use
  Company Number: NL-TEVA-236272ISR

PATIENT
  Sex: Male

DRUGS (2)
  1. MORPHINE [Suspect]
     Indication: PAIN
     Dates: start: 20081117, end: 20081123
  2. DIAZEPAM [Concomitant]
     Dates: end: 20081123

REACTIONS (2)
  - COMA [None]
  - DYSPNOEA [None]
